FAERS Safety Report 24287989 (Version 1)
Quarter: 2024Q3

REPORT INFORMATION
  Report Type: Spontaneous
  Country: DE (occurrence: DE)
  Receive Date: 20240905
  Receipt Date: 20240905
  Transmission Date: 20241017
  Serious: Yes (Life-Threatening, Hospitalization, Other)
  Sender: MERCK
  Company Number: DE-DCGMA-24203765

PATIENT
  Age: 66 Year
  Sex: Male

DRUGS (4)
  1. ERTUGLIFLOZIN\SITAGLIPTIN [Suspect]
     Active Substance: ERTUGLIFLOZIN\SITAGLIPTIN
     Dosage: 5MG/100MG
     Route: 048
  2. METFORMIN [Suspect]
     Active Substance: METFORMIN HYDROCHLORIDE
     Indication: Type 2 diabetes mellitus
     Dosage: 1000 MG 2X
     Route: 048
  3. VIACORIND [Concomitant]
     Indication: Hypertension
     Dosage: 7MG/5MG/2.5MG
     Route: 048
  4. AMLODIPINE [Concomitant]
     Active Substance: AMLODIPINE BESYLATE
     Indication: Hypertension
     Dosage: 5 MILLIGRAM

REACTIONS (3)
  - Hyperglycaemia [Not Recovered/Not Resolved]
  - Diabetic ketoacidosis [Not Recovered/Not Resolved]
  - Respiratory failure [Not Recovered/Not Resolved]

NARRATIVE: CASE EVENT DATE: 20240730
